FAERS Safety Report 8390278-4 (Version None)
Quarter: 2012Q2

REPORT INFORMATION
  Report Type: 
  Country: None (occurrence: None)
  Receive Date: 20120529
  Receipt Date: 20120518
  Transmission Date: 20120825
  Serious: Yes (Other)
  Sender: FDA-Public Use
  Company Number: US-JNJFOC-20120515814

PATIENT
  Sex: Male
  Weight: 75.75 kg

DRUGS (1)
  1. ZYTIGA [Suspect]
     Indication: PROSTATE CANCER
     Route: 048
     Dates: start: 20110212, end: 20120120

REACTIONS (2)
  - VISION BLURRED [None]
  - LACRIMATION INCREASED [None]
